FAERS Safety Report 19322901 (Version 1)
Quarter: 2021Q2

REPORT INFORMATION
  Report Type: Spontaneous
  Country: US (occurrence: US)
  Receive Date: 20210528
  Receipt Date: 20210528
  Transmission Date: 20210717
  Serious: No
  Sender: FDA-Public Use
  Company Number: US-SA-2021SA171359

PATIENT
  Age: 51 Year
  Sex: Male

DRUGS (3)
  1. LEMTRADA [Suspect]
     Active Substance: ALEMTUZUMAB
     Dosage: 12 MG, QD (1ST DOSE)
     Route: 041
     Dates: start: 20200610, end: 20200610
  2. LEMTRADA [Suspect]
     Active Substance: ALEMTUZUMAB
     Dosage: 12 MG, QD (THIRD AND FINAL DOSE OF THE SECOND COURSE)
     Route: 041
     Dates: start: 20200625, end: 20200626
  3. LEMTRADA [Suspect]
     Active Substance: ALEMTUZUMAB
     Indication: MULTIPLE SCLEROSIS
     Dosage: 12 MG, QD
     Route: 041
     Dates: start: 20190520, end: 20190524

REACTIONS (2)
  - Inappropriate schedule of product administration [Unknown]
  - Pyrexia [Unknown]

NARRATIVE: CASE EVENT DATE: 20200611
